FAERS Safety Report 5781540-X (Version None)
Quarter: 2008Q2

REPORT INFORMATION
  Report Type: 
  Country: None (occurrence: None)
  Receive Date: 20080623
  Receipt Date: 20070522
  Transmission Date: 20081010
  Serious: No
  Sender: FDA-Public Use
  Company Number: US-ASTRAZENECA-2007UW12658

PATIENT
  Age: 68 Year
  Sex: Female
  Weight: 49.9 kg

DRUGS (1)
  1. RHINOCORT [Suspect]
     Indication: RHINORRHOEA
     Route: 045

REACTIONS (2)
  - CLUSTER HEADACHE [None]
  - EAR PAIN [None]
